FAERS Safety Report 24322297 (Version 1)
Quarter: 2024Q3

REPORT INFORMATION
  Report Type: Spontaneous
  Country: DK (occurrence: DK)
  Receive Date: 20240916
  Receipt Date: 20240916
  Transmission Date: 20241017
  Serious: Yes (Hospitalization)
  Sender: CHEPLAPHARM
  Company Number: None

PATIENT
  Age: 53 Year
  Sex: Male
  Weight: 93.5 kg

DRUGS (1)
  1. OLANZAPINE PAMOATE [Suspect]
     Active Substance: OLANZAPINE PAMOATE
     Indication: Bipolar disorder
     Route: 030
     Dates: start: 20240717

REACTIONS (1)
  - Post procedural complication [Recovering/Resolving]

NARRATIVE: CASE EVENT DATE: 20240828
